FAERS Safety Report 25864782 (Version 1)
Quarter: 2025Q3

REPORT INFORMATION
  Report Type: Other
  Country: GB (occurrence: GB)
  Receive Date: 20250930
  Receipt Date: 20250930
  Transmission Date: 20251020
  Serious: Yes (Disabling, Other)
  Sender: GLENMARK
  Company Number: None

PATIENT
  Age: 75 Year
  Sex: Female
  Weight: 88 kg

DRUGS (1)
  1. SOLIFENACIN SUCCINATE [Suspect]
     Active Substance: SOLIFENACIN SUCCINATE
     Indication: Incontinence
     Route: 065
     Dates: start: 20230301, end: 20250301

REACTIONS (4)
  - Confusional state [Recovering/Resolving]
  - Hallucination [Recovering/Resolving]
  - Medication error [Unknown]
  - Loss of personal independence in daily activities [Recovering/Resolving]

NARRATIVE: CASE EVENT DATE: 20230701
